FAERS Safety Report 13449720 (Version 1)
Quarter: 2017Q2

REPORT INFORMATION
  Report Type: Spontaneous
  Country: US (occurrence: US)
  Receive Date: 20170417
  Receipt Date: 20170417
  Transmission Date: 20170830
  Serious: No
  Sender: FDA-Public Use
  Company Number: US-BANPHARM-20164674

PATIENT
  Age: 81 Year
  Weight: 89.81 kg

DRUGS (2)
  1. LOW DOSE ASPIRIN [Suspect]
     Active Substance: ASPIRIN
  2. ALEVE [Suspect]
     Active Substance: NAPROXEN SODIUM
     Indication: PAIN
     Dosage: 1 DF, BID,
     Route: 048
     Dates: start: 2010

REACTIONS (1)
  - Incorrect drug administration duration [Unknown]
